FAERS Safety Report 5945962-6 (Version None)
Quarter: 2008Q4

REPORT INFORMATION
  Report Type: 
  Country: None (occurrence: None)
  Receive Date: 20081110
  Receipt Date: 20081031
  Transmission Date: 20090506
  Serious: Yes (Other)
  Sender: FDA-Public Use
  Company Number: US-BAYER-200827639NA

PATIENT
  Age: 75 Year
  Sex: Male
  Weight: 82 kg

DRUGS (12)
  1. NEXAVAR [Suspect]
     Indication: HEPATIC NEOPLASM MALIGNANT
     Dosage: TOTAL DAILY DOSE: 800 MG  UNIT DOSE: 200 MG
     Route: 048
     Dates: start: 20080331, end: 20080410
  2. LISINOPRIL AND HYDROCHLOROTHIAZIDE [Concomitant]
     Indication: HYPERTENSION
  3. GLIPIZIDE [Concomitant]
     Indication: DIABETES MELLITUS
     Dates: start: 20080821
  4. POTASSIUM CHLORIDE [Concomitant]
     Indication: MUSCLE SPASMS
     Dosage: TOTAL DAILY DOSE: 20 MEQ
  5. ALLOPURINOL [Concomitant]
     Indication: GOUT
  6. FLOMAX [Concomitant]
     Indication: BENIGN PROSTATIC HYPERPLASIA
     Dosage: TOTAL DAILY DOSE: 0.8 MG
     Dates: start: 20080827
  7. B-COMPLEX 100% RDI BY WINDMILL [Concomitant]
     Indication: VITAMIN SUPPLEMENTATION
  8. CONQUER HA [Concomitant]
     Indication: ARTHRALGIA
     Dates: start: 20080627
  9. DILTIAZEM HCL [Concomitant]
     Indication: HYPERTENSION
     Dosage: TOTAL DAILY DOSE: 240 MG
  10. COUMADIN [Concomitant]
     Indication: ANTICOAGULANT THERAPY
  11. COUMADIN [Concomitant]
  12. CELEBREX [Concomitant]
     Indication: ANTIINFLAMMATORY THERAPY

REACTIONS (16)
  - ALOPECIA [None]
  - BLISTER [None]
  - EPISTAXIS [None]
  - ERYTHEMA [None]
  - GAIT DISTURBANCE [None]
  - GINGIVAL BLEEDING [None]
  - HYPOPHAGIA [None]
  - LISTLESS [None]
  - NAIL BED BLEEDING [None]
  - PAIN IN EXTREMITY [None]
  - SCLERAL HAEMORRHAGE [None]
  - SKIN DISCOLOURATION [None]
  - SKIN HAEMORRHAGE [None]
  - STEVENS-JOHNSON SYNDROME [None]
  - STOMATITIS [None]
  - WEIGHT DECREASED [None]
